FAERS Safety Report 4292472-0 (Version None)
Quarter: 2004Q1

REPORT INFORMATION
  Report Type: 
  Country: None (occurrence: None)
  Receive Date: 20040126
  Receipt Date: 20031015
  Transmission Date: 20041129
  Serious: No
  Sender: FDA-Public Use
  Company Number: USA031049205

PATIENT
  Age: 75 Year
  Sex: Female
  Weight: 37 kg

DRUGS (7)
  1. FORTEO [Suspect]
     Indication: OSTEOPOROSIS
     Dates: start: 20030924, end: 20031004
  2. EVISTA [Concomitant]
  3. MIACALCIN [Concomitant]
  4. SYNTHROID [Concomitant]
  5. RITALIN [Concomitant]
  6. MULTI-VITAMIN [Concomitant]
  7. CALCIUM WITH VITAMIN D [Concomitant]

REACTIONS (5)
  - DIZZINESS [None]
  - FATIGUE [None]
  - FEELING ABNORMAL [None]
  - HEADACHE [None]
  - NAUSEA [None]
